FAERS Safety Report 6707334-6 (Version None)
Quarter: 2010Q2

REPORT INFORMATION
  Report Type: 
  Country: None (occurrence: None)
  Receive Date: 20100503
  Receipt Date: 20091204
  Transmission Date: 20101027
  Serious: No
  Sender: FDA-Public Use
  Company Number: US-ASTRAZENECA-2009SE30370

PATIENT
  Age: 29672 Day
  Sex: Female
  Weight: 59 kg

DRUGS (17)
  1. NEXIUM [Suspect]
     Indication: MALAISE
     Route: 048
     Dates: start: 20050101
  2. NEXIUM [Suspect]
     Route: 048
  3. NEXIUM [Suspect]
     Route: 048
  4. LEVOTHYROXINE [Concomitant]
  5. ATENOLOL [Concomitant]
  6. ZOLOFT [Concomitant]
  7. LOTREL [Concomitant]
  8. LIPITOR [Concomitant]
  9. CO Q 10 [Concomitant]
  10. BONIVA [Concomitant]
  11. MULTI-VITAMINS [Concomitant]
  12. ACIDOPHYLLIS [Concomitant]
  13. BIOTIN [Concomitant]
  14. CALCIUM [Concomitant]
  15. ZINC [Concomitant]
  16. LUTEIN [Concomitant]
  17. VITAMIN D [Concomitant]

REACTIONS (1)
  - THROAT IRRITATION [None]
